FAERS Safety Report 7423909-3 (Version None)
Quarter: 2011Q2

REPORT INFORMATION
  Report Type: 
  Country: None (occurrence: None)
  Receive Date: 20110419
  Receipt Date: 20110412
  Transmission Date: 20111010
  Serious: Yes (Hospitalization)
  Sender: FDA-Public Use
  Company Number: A0889412A

PATIENT
  Age: 54 Year
  Sex: Male
  Weight: 106.4 kg

DRUGS (14)
  1. ASPIRIN [Concomitant]
  2. LASIX [Concomitant]
  3. ZETIA [Concomitant]
  4. CRESTOR [Concomitant]
  5. NEFAZODONE [Concomitant]
  6. FUROSEMIDE [Concomitant]
  7. TRICOR [Concomitant]
  8. AVANDIA [Suspect]
     Indication: DIABETES MELLITUS
     Dosage: 4MG PER DAY
     Route: 048
     Dates: start: 20000201, end: 20101001
  9. ATACAND [Concomitant]
  10. GLUCOPHAGE [Concomitant]
  11. LISINOPRIL [Concomitant]
  12. SERZONE [Concomitant]
  13. BUSPAR [Concomitant]
  14. PRINIVIL [Concomitant]

REACTIONS (4)
  - MYOCARDIAL INFARCTION [None]
  - CORONARY ARTERY BYPASS [None]
  - CORONARY ARTERY DISEASE [None]
  - ATRIAL FIBRILLATION [None]
